FAERS Safety Report 7738423-5 (Version None)
Quarter: 2011Q3

REPORT INFORMATION
  Report Type: 
  Country: None (occurrence: None)
  Receive Date: 20110908
  Receipt Date: 20110826
  Transmission Date: 20111222
  Serious: Yes (Hospitalization, Other)
  Sender: FDA-Public Use
  Company Number: FR-CELGENEUS-056-20785-11062475

PATIENT
  Sex: Male

DRUGS (6)
  1. KEPPRA [Concomitant]
     Route: 065
  2. ZOFENIL [Concomitant]
     Route: 065
  3. LERCANIDIPINE [Concomitant]
     Route: 065
  4. COLCHICINE [Concomitant]
     Route: 065
  5. THALIDOMIDE [Suspect]
     Dosage: 50 MILLIGRAM
     Route: 048
     Dates: start: 19951001, end: 20100101
  6. STABLON [Concomitant]
     Route: 065

REACTIONS (4)
  - FALL [None]
  - POLYNEUROPATHY [None]
  - SYNCOPE [None]
  - PERIPHLEBITIS [None]
